FAERS Safety Report 9217591 (Version 1)
Quarter: 2013Q2

REPORT INFORMATION
  Report Type: Spontaneous
  Country: GB (occurrence: GB)
  Receive Date: 20130408
  Receipt Date: 20130408
  Transmission Date: 20140414
  Serious: Yes (Other)
  Sender: FDA-Public Use
  Company Number: GB-PFIZER INC-2013106743

PATIENT
  Age: 77 Year
  Sex: Female

DRUGS (12)
  1. DOXAZOSIN MESILATE [Suspect]
     Indication: HYPERTENSION
     Dosage: 1 MG, 1X/DAY
     Route: 048
     Dates: start: 20130215, end: 20130225
  2. METFORMIN [Concomitant]
  3. LERCANIDIPINE [Concomitant]
  4. ASPIRIN [Concomitant]
  5. LISINOPRIL [Concomitant]
  6. ATENOLOL [Concomitant]
  7. CODEINE [Concomitant]
  8. INDAPAMIDE [Concomitant]
  9. CINNARIZINE [Concomitant]
  10. SIMVASTATIN [Concomitant]
  11. ROPINIROLE [Concomitant]
  12. OXYBUTYNIN [Concomitant]

REACTIONS (3)
  - Gout [Recovering/Resolving]
  - Local swelling [Unknown]
  - Mobility decreased [Unknown]
